FAERS Safety Report 6755841-2 (Version None)
Quarter: 2010Q2

REPORT INFORMATION
  Report Type: 
  Country: None (occurrence: None)
  Receive Date: 20100524
  Receipt Date: 20100304
  Transmission Date: 20101027
  Serious: No
  Sender: FDA-Public Use
  Company Number: 008334

PATIENT
  Age: 40 Year
  Sex: Female

DRUGS (5)
  1. CIMZIA [Suspect]
     Indication: CROHN'S DISEASE
     Dosage: (SUBCUTANEOUS)
     Route: 058
     Dates: start: 20090119
  2. PENTASA [Concomitant]
  3. SPIRONOLACTONE [Concomitant]
  4. EFFEXOR /01233802/ [Concomitant]
  5. MICROGESTIN FE [Concomitant]

REACTIONS (1)
  - EYE INFLAMMATION [None]
